FAERS Safety Report 6597616-3 (Version None)
Quarter: 2010Q1

REPORT INFORMATION
  Report Type: 
  Country: None (occurrence: None)
  Receive Date: 20100223
  Receipt Date: 20100211
  Transmission Date: 20100710
  Serious: Yes (Life-Threatening, Other)
  Sender: FDA-Public Use
  Company Number: NP-PFIZER INC-2010019456

PATIENT
  Age: 27 Year
  Sex: Female
  Weight: 56 kg

DRUGS (8)
  1. FENTANYL CITRATE [Suspect]
     Indication: ANAESTHESIA
     Dosage: 100 UG, UNK
     Route: 048
  2. GABAPENTIN [Suspect]
     Indication: PREMEDICATION
     Dosage: 600 MG, UNK
     Route: 048
  3. VECURONIUM [Suspect]
     Indication: ANAESTHESIA
     Dosage: 5.5 MG, UNK
     Route: 042
  4. PROPOFOL [Suspect]
     Indication: ANAESTHESIA
     Dosage: 170 MG, UNK
     Route: 042
  5. CEFTRIAXONE [Suspect]
     Dosage: 1 G, UNK
     Route: 042
  6. HALOTHANE [Suspect]
     Dosage: 1.5%
     Route: 042
  7. HALOTHANE [Suspect]
     Dosage: 2%
  8. LABETALOL [Suspect]
     Dosage: 10 MG, UNK

REACTIONS (1)
  - CARDIAC ARREST [None]
